FAERS Safety Report 22295015 (Version 1)
Quarter: 2023Q2

REPORT INFORMATION
  Report Type: Spontaneous
  Country: US (occurrence: US)
  Receive Date: 20230508
  Receipt Date: 20230508
  Transmission Date: 20230721
  Serious: No
  Sender: FDA-Public Use
  Company Number: US-002147023-NVSC2023US100165

PATIENT
  Sex: Female

DRUGS (4)
  1. KISQALI FEMARA CO-PACK [Suspect]
     Active Substance: LETROZOLE\RIBOCICLIB
     Indication: Breast cancer
     Dosage: 600 MG, QD (3 TABLETS)
     Route: 048
  2. KISQALI FEMARA CO-PACK [Suspect]
     Active Substance: LETROZOLE\RIBOCICLIB
     Dosage: 400 MG, QD (2 TABLETS)
     Route: 048
  3. KISQALI FEMARA CO-PACK [Suspect]
     Active Substance: LETROZOLE\RIBOCICLIB
     Indication: Breast cancer
     Dosage: 600 MG, QD (3 TABLETS)
     Route: 048
  4. KISQALI FEMARA CO-PACK [Suspect]
     Active Substance: LETROZOLE\RIBOCICLIB
     Dosage: 400 MG, QD (2 TABLETS)
     Route: 048

REACTIONS (2)
  - Alopecia [Unknown]
  - White blood cell count decreased [Unknown]
